FAERS Safety Report 7399528-4 (Version None)
Quarter: 2011Q2

REPORT INFORMATION
  Report Type: 
  Country: None (occurrence: None)
  Receive Date: 20110407
  Receipt Date: 20110328
  Transmission Date: 20111010
  Serious: Yes (Hospitalization, Other)
  Sender: FDA-Public Use
  Company Number: US-ELI_LILLY_AND_COMPANY-US201102004769

PATIENT
  Sex: Female
  Weight: 44.898 kg

DRUGS (18)
  1. LISINOPRIL [Concomitant]
     Dosage: UNK, UNKNOWN
     Route: 065
  2. KEFLEX [Concomitant]
     Dosage: UNK, UNKNOWN
     Route: 065
  3. ACIPHEX [Concomitant]
     Dosage: UNK, UNKNOWN
     Route: 065
  4. ASCORBIC ACID [Concomitant]
     Dosage: UNK, UNKNOWN
     Route: 065
  5. TRIAMTEREEN/HYDROCHLOOTTHIAZIDE [Concomitant]
  6. FORTEO [Suspect]
     Indication: OSTEOPOROSIS
     Dosage: 20 UG, DAILY (1/D)
     Route: 065
     Dates: start: 20101105
  7. SYNTHROID [Concomitant]
     Dosage: UNK, UNKNOWN
     Route: 065
  8. LIDOCAINE [Concomitant]
     Dosage: UNK, UNKNOWN
     Route: 065
  9. RITUXAN [Concomitant]
     Dosage: UNK, UNKNOWN
     Route: 065
  10. ZOCOR [Concomitant]
     Dosage: UNK, UNKNOWN
     Route: 065
  11. MEDROL [Concomitant]
     Dosage: UNK, UNKNOWN
     Route: 065
  12. VICODIN [Concomitant]
     Dosage: UNK, UNKNOWN
     Route: 065
  13. ZANTAC [Concomitant]
  14. GABAPENTIN [Concomitant]
     Dosage: UNK, UNKNOWN
     Route: 065
  15. LEFLUNOMIDE [Concomitant]
     Dosage: UNK, UNKNOWN
     Route: 065
  16. METOCLOPRAMIDE [Concomitant]
     Dosage: UNK, UNKNOWN
     Route: 065
  17. FLAXSEED OIL [Concomitant]
     Dosage: UNK, UNKNOWN
     Route: 065
  18. VYTORIN [Concomitant]
     Dosage: UNK, UNKNOWN
     Route: 065

REACTIONS (6)
  - VOMITING [None]
  - DIARRHOEA [None]
  - CEREBROVASCULAR ACCIDENT [None]
  - DEHYDRATION [None]
  - SENSORY LOSS [None]
  - NAUSEA [None]
